FAERS Safety Report 7134452-3 (Version None)
Quarter: 2010Q4

REPORT INFORMATION
  Report Type: 
  Country: None (occurrence: None)
  Receive Date: 20101117
  Receipt Date: 20101111
  Transmission Date: 20110411
  Serious: Yes (Other)
  Sender: FDA-Public Use
  Company Number: 2010SP059457

PATIENT
  Sex: Male
  Weight: 70 kg

DRUGS (1)
  1. TEMODAL [Suspect]
     Indication: GLIOBLASTOMA
     Dates: start: 20100921, end: 20101029

REACTIONS (1)
  - BLOOD LACTATE DEHYDROGENASE INCREASED [None]
